FAERS Safety Report 8253001-X (Version None)
Quarter: 2012Q2

REPORT INFORMATION
  Report Type: 
  Country: None (occurrence: None)
  Receive Date: 20120402
  Receipt Date: 20120329
  Transmission Date: 20120825
  Serious: Yes (Hospitalization, Disabling)
  Sender: FDA-Public Use
  Company Number: US-MERCK-1105USA03432

PATIENT
  Age: 51 Year
  Sex: Female
  Weight: 80 kg

DRUGS (8)
  1. FOSAMAX [Suspect]
     Route: 048
     Dates: start: 20020201, end: 20020701
  2. FOSAMAX [Suspect]
     Indication: OSTEOPOROSIS
     Route: 048
     Dates: start: 20000401, end: 20020201
  3. SYNTHROID [Concomitant]
     Indication: HYPOTHYROIDISM
     Route: 065
  4. HORMONES (UNSPECIFIED) [Concomitant]
     Route: 065
     Dates: start: 19970101, end: 20010101
  5. FOSAMAX [Suspect]
     Indication: OSTEOPENIA
     Route: 048
     Dates: start: 20000401, end: 20020201
  6. FOSAMAX [Suspect]
     Route: 048
     Dates: start: 20020201, end: 20020701
  7. FOSAMAX [Suspect]
     Route: 048
     Dates: start: 20020701, end: 20090506
  8. FOSAMAX [Suspect]
     Route: 048
     Dates: start: 20020701, end: 20090506

REACTIONS (27)
  - RHINITIS ALLERGIC [None]
  - RETINAL HAEMORRHAGE [None]
  - FOOT DEFORMITY [None]
  - SINUSITIS [None]
  - NECK PAIN [None]
  - HAEMORRHAGE [None]
  - NERVE COMPRESSION [None]
  - LOW TURNOVER OSTEOPATHY [None]
  - OESOPHAGEAL DISORDER [None]
  - DIABETES MELLITUS [None]
  - FEMUR FRACTURE [None]
  - ANAEMIA POSTOPERATIVE [None]
  - FOOT FRACTURE [None]
  - FALL [None]
  - VITREOUS DETACHMENT [None]
  - ARTHRITIS [None]
  - UTERINE CYST [None]
  - FRACTURE NONUNION [None]
  - IMPAIRED HEALING [None]
  - DEVICE FAILURE [None]
  - VIITH NERVE PARALYSIS [None]
  - DIVERTICULUM INTESTINAL [None]
  - SCIATICA [None]
  - CYST [None]
  - ADVERSE EVENT [None]
  - HAND FRACTURE [None]
  - DEPRESSION [None]
